FAERS Safety Report 7565347-9 (Version None)
Quarter: 2011Q2

REPORT INFORMATION
  Report Type: 
  Country: None (occurrence: None)
  Receive Date: 20110623
  Receipt Date: 20110617
  Transmission Date: 20111010
  Serious: Yes (Hospitalization)
  Sender: FDA-Public Use
  Company Number: US-BIOGENIDEC-2011BI022619

PATIENT
  Age: 57 Year
  Sex: Male

DRUGS (1)
  1. AVONEX [Suspect]
     Indication: MULTIPLE SCLEROSIS
     Route: 030
     Dates: start: 20091225

REACTIONS (5)
  - TREMOR [None]
  - LYMPHOEDEMA [None]
  - GAIT DISTURBANCE [None]
  - ARTHROPATHY [None]
  - SKIN ULCER [None]
